FAERS Safety Report 6419405-2 (Version None)
Quarter: 2009Q4

REPORT INFORMATION
  Report Type: 
  Country: None (occurrence: None)
  Receive Date: 20091029
  Receipt Date: 20091021
  Transmission Date: 20100525
  Serious: Yes (Death)
  Sender: FDA-Public Use
  Company Number: CN-BAXTER-2009BH016421

PATIENT

DRUGS (3)
  1. DEXTROSE 5% [Suspect]
     Indication: BACTERAEMIA
     Route: 042
     Dates: start: 20091001, end: 20091001
  2. DEXTROSE 10% [Suspect]
     Indication: BACTERAEMIA
     Route: 042
     Dates: start: 20091001, end: 20091001
  3. KU HUANG INJECTION [Suspect]
     Indication: BACTERAEMIA
     Route: 042
     Dates: start: 20091001, end: 20091001

REACTIONS (4)
  - BLOOD PRESSURE DECREASED [None]
  - DEATH [None]
  - OLIGURIA [None]
  - PYREXIA [None]
